FAERS Safety Report 11037778 (Version 1)
Quarter: 2015Q2

REPORT INFORMATION
  Report Type: Spontaneous
  Country: US (occurrence: None)
  Receive Date: 20150415
  Receipt Date: 20150415
  Transmission Date: 20150821
  Serious: Yes (Disabling)
  Sender: FDA-Public Use
  Company Number: None

PATIENT
  Age: 58 Year
  Sex: Female
  Weight: 53.52 kg

DRUGS (37)
  1. PROLIA [Suspect]
     Active Substance: DENOSUMAB
     Indication: OSTEOPOROSIS
     Dosage: 1 INJECTION ?EVERY 6 MOS?INTO THE MUSCLE??1 1/2 YRS
     Route: 030
  2. CARDIZEN CD [Concomitant]
  3. ALBUTEROL. [Concomitant]
     Active Substance: ALBUTEROL
  4. CALCIUM/VITAMIN D3 [Concomitant]
  5. HOME BREATHING MACHINE [Concomitant]
  6. K-DUR [Concomitant]
     Active Substance: POTASSIUM CHLORIDE
  7. MOTRIN [Concomitant]
     Active Substance: IBUPROFEN
  8. VITAMIN D3 [Concomitant]
     Active Substance: CHOLECALCIFEROL
  9. BETHANECHOL [Concomitant]
     Active Substance: BETHANECHOL
  10. ALBUTEROL-IPRATROPIUM [Concomitant]
  11. SOMA [Concomitant]
     Active Substance: CARISOPRODOL
  12. IMITREX [Concomitant]
     Active Substance: SUMATRIPTAN\SUMATRIPTAN SUCCINATE
  13. TOPAMAX [Concomitant]
     Active Substance: TOPIRAMATE
  14. ZOCOR [Concomitant]
     Active Substance: SIMVASTATIN
  15. FISH OIL [Concomitant]
     Active Substance: FISH OIL
  16. PROMETHAZINE [Concomitant]
     Active Substance: PROMETHAZINE\PROMETHAZINE HYDROCHLORIDE
  17. EPIPEN [Concomitant]
     Active Substance: EPINEPHRINE
  18. ENABLEX [Concomitant]
     Active Substance: DARIFENACIN\DARIFENACIN HYDROBROMIDE
  19. COZAAR [Concomitant]
     Active Substance: LOSARTAN POTASSIUM
  20. DEMEROL [Concomitant]
     Active Substance: MEPERIDINE HYDROCHLORIDE
  21. ALERE MACHINE [Concomitant]
  22. HYTRIN STOOL SOFTNER [Concomitant]
  23. TEMAZRPAM [Concomitant]
  24. VITAMIN D3 [Concomitant]
     Active Substance: CHOLECALCIFEROL
  25. VITAMIN C [Concomitant]
     Active Substance: ASCORBIC ACID
  26. VITAMIN E [Concomitant]
     Active Substance: .ALPHA.-TOCOPHEROL
  27. BENADRYL [Concomitant]
     Active Substance: DIPHENHYDRAMINE HYDROCHLORIDE
  28. PRILOSEC [Concomitant]
     Active Substance: OMEPRAZOLE MAGNESIUM
  29. FIORICET/CODEINE [Concomitant]
  30. PORAIR [Concomitant]
  31. NASACORT AQ [Concomitant]
     Active Substance: TRIAMCINOLONE ACETONIDE
  32. COULMADIN [Concomitant]
  33. SOMA [Concomitant]
     Active Substance: CARISOPRODOL
  34. NEURONTIN [Concomitant]
     Active Substance: GABAPENTIN
  35. VITAMIN C [Concomitant]
     Active Substance: ASCORBIC ACID
  36. ADVAIR DISKUS [Concomitant]
     Active Substance: FLUTICASONE PROPIONATE\SALMETEROL XINAFOATE
  37. SINGULAIR [Concomitant]
     Active Substance: MONTELUKAST SODIUM

REACTIONS (3)
  - Loose tooth [None]
  - Device failure [None]
  - Jaw disorder [None]

NARRATIVE: CASE EVENT DATE: 20150128
